FAERS Safety Report 13101315 (Version 2)
Quarter: 2017Q1

REPORT INFORMATION
  Report Type: Report from Study
  Country: US (occurrence: US)
  Receive Date: 20170110
  Receipt Date: 20170119
  Transmission Date: 20170428
  Serious: Yes (Hospitalization)
  Sender: FDA-Public Use
  Company Number: US-EISAI MEDICAL RESEARCH-EC-2017-023878

PATIENT
  Age: 73 Year
  Sex: Female
  Weight: 53.52 kg

DRUGS (17)
  1. LENVATINIB [Suspect]
     Active Substance: LENVATINIB
     Indication: BLADDER TRANSITIONAL CELL CARCINOMA
     Route: 048
     Dates: start: 20160609, end: 20160623
  2. LENVATINIB [Suspect]
     Active Substance: LENVATINIB
     Route: 048
     Dates: start: 20160819, end: 20161122
  3. LENVATINIB [Suspect]
     Active Substance: LENVATINIB
     Route: 048
     Dates: start: 20161128, end: 20161204
  4. METFORMIN [Concomitant]
     Active Substance: METFORMIN HYDROCHLORIDE
  5. ASPIRIN. [Concomitant]
     Active Substance: ASPIRIN
  6. LOPERAMIDE [Concomitant]
     Active Substance: LOPERAMIDE
  7. METOPROLOL. [Concomitant]
     Active Substance: METOPROLOL
  8. CHANTIX [Concomitant]
     Active Substance: VARENICLINE TARTRATE
  9. FUROSEMIDE. [Concomitant]
     Active Substance: FUROSEMIDE
  10. LEVOTHYROXINE. [Concomitant]
     Active Substance: LEVOTHYROXINE
  11. PREDNISONE. [Concomitant]
     Active Substance: PREDNISONE
  12. MEGESTROL [Concomitant]
     Active Substance: MEGESTROL
  13. LENVATINIB [Suspect]
     Active Substance: LENVATINIB
     Route: 048
     Dates: start: 20160713, end: 20160810
  14. PEMBROLIZUMAB. [Suspect]
     Active Substance: PEMBROLIZUMAB
     Indication: BLADDER TRANSITIONAL CELL CARCINOMA
     Route: 041
     Dates: start: 20160609, end: 20161101
  15. LISINOPRIL. [Concomitant]
     Active Substance: LISINOPRIL
  16. MIRTAZEPINE [Concomitant]
     Active Substance: MIRTAZAPINE
  17. GLIPIZIDE. [Concomitant]
     Active Substance: GLIPIZIDE

REACTIONS (2)
  - Asthenia [Not Recovered/Not Resolved]
  - Pneumonia [Not Recovered/Not Resolved]

NARRATIVE: CASE EVENT DATE: 20170104
